FAERS Safety Report 5709221-9 (Version None)
Quarter: 2008Q2

REPORT INFORMATION
  Report Type: 
  Country: None (occurrence: None)
  Receive Date: 20080418
  Receipt Date: 20080409
  Transmission Date: 20081010
  Serious: Yes (Death, Hospitalization)
  Sender: FDA-Public Use
  Company Number: JP-NOVOPROD-273043

PATIENT
  Sex: Male
  Weight: 46 kg

DRUGS (19)
  1. NOVORAPID CHU FLEXPEN [Suspect]
     Indication: DRUG USE FOR UNKNOWN INDICATION
     Dates: end: 20071209
  2. NOVORAPID CHU FLEXPEN [Suspect]
     Dates: start: 20071218, end: 20080110
  3. LOXONIN                            /00890702/ [Suspect]
     Dosage: 180 MG, QD
     Route: 048
     Dates: start: 20070721, end: 20071210
  4. LOXONIN                            /00890702/ [Suspect]
     Dosage: 180 MG, QD
     Route: 048
     Dates: start: 20071226, end: 20080110
  5. CANDESARTAN CILEXETIL [Suspect]
     Dosage: 4 MG, QD
     Route: 048
     Dates: start: 20070830, end: 20071210
  6. CANDESARTAN CILEXETIL [Suspect]
     Dosage: 4 MG, QD
     Route: 048
     Dates: start: 20071218, end: 20080110
  7. PROTECADIN [Concomitant]
     Dosage: 20 MG, QD
     Route: 048
     Dates: start: 20070721, end: 20071210
  8. PROTECADIN [Concomitant]
     Dosage: 20 MG, QD
     Route: 048
     Dates: start: 20071218
  9. MUCOSTA [Concomitant]
     Dosage: 300 MG, QD
     Route: 048
     Dates: start: 20070721, end: 20071210
  10. MUCOSTA [Concomitant]
     Dosage: 300 MG, QD
     Route: 048
     Dates: start: 20071218, end: 20080110
  11. NITRAZEPAM [Concomitant]
     Dates: start: 20070721, end: 20071210
  12. NITRAZEPAM [Concomitant]
     Dates: start: 20071218, end: 20080110
  13. DORAL [Concomitant]
     Dosage: 25 MG, QD
     Dates: start: 20071117, end: 20071212
  14. EURODIN                            /00425901/ [Concomitant]
     Dosage: 2 MG, QD
     Route: 048
     Dates: start: 20071117, end: 20071123
  15. ROHYPNOL [Concomitant]
     Dosage: 2 MG, QD
     Route: 048
     Dates: start: 20070721, end: 20071212
  16. PAXIL [Concomitant]
     Dosage: 20 MG, QD
     Route: 048
     Dates: start: 20070721, end: 20071116
  17. PAXIL [Concomitant]
     Dosage: 20 MG, QD
     Route: 048
     Dates: start: 20071213, end: 20080110
  18. NOVOLIN R [Concomitant]
     Dates: start: 20071209, end: 20071218
  19. NOVOLIN R [Concomitant]
     Dates: start: 20080109

REACTIONS (3)
  - CEREBRAL INFARCTION [None]
  - FRACTURE [None]
  - INTERSTITIAL LUNG DISEASE [None]
